FAERS Safety Report 18776598 (Version 3)
Quarter: 2021Q1

REPORT INFORMATION
  Report Type: Spontaneous
  Country: US (occurrence: US)
  Receive Date: 20210123
  Receipt Date: 20210304
  Transmission Date: 20210419
  Serious: No
  Sender: FDA-Public Use
  Company Number: US-TAKEDA-2021TUS004344

PATIENT
  Sex: Male
  Weight: 57 kg

DRUGS (3)
  1. ENTYVIO [Suspect]
     Active Substance: VEDOLIZUMAB
     Indication: COLITIS ULCERATIVE
     Dosage: 300 MILLIGRAM
     Route: 042
     Dates: start: 201903, end: 202007
  2. ENTYVIO [Suspect]
     Active Substance: VEDOLIZUMAB
     Dosage: 300 MILLIGRAM
     Route: 042
     Dates: start: 20200920
  3. ENTYVIO [Suspect]
     Active Substance: VEDOLIZUMAB
     Dosage: 350 MILLIGRAM
     Route: 042

REACTIONS (15)
  - Anger [Unknown]
  - Alopecia [Unknown]
  - Mania [Unknown]
  - Loss of dreaming [Unknown]
  - Feeling cold [Unknown]
  - Anxiety [Unknown]
  - Therapeutic reaction time decreased [Unknown]
  - Personality change [Unknown]
  - Aggression [Unknown]
  - Off label use [Unknown]
  - Adverse drug reaction [Unknown]
  - Feeling abnormal [Unknown]
  - Pyrexia [Unknown]
  - Abdominal pain upper [Unknown]
  - Decreased appetite [Unknown]
